FAERS Safety Report 8530034-7 (Version None)
Quarter: 2012Q3

REPORT INFORMATION
  Report Type: 
  Country: None (occurrence: None)
  Receive Date: 20120723
  Receipt Date: 20120719
  Transmission Date: 20120928
  Serious: Yes (Life-Threatening)
  Sender: FDA-Public Use
  Company Number: GB-JNJFOC-20120709623

PATIENT
  Age: 30 Year
  Sex: Male

DRUGS (4)
  1. ITRACONAZOLE [Suspect]
     Indication: ECZEMA
     Route: 048
     Dates: start: 20120627, end: 20120628
  2. BETAMETHASONE DIPROPIONATE [Concomitant]
     Indication: ECZEMA
     Route: 061
     Dates: start: 20120627
  3. CLOTRIMAZOLE [Concomitant]
     Indication: ECZEMA
     Route: 061
     Dates: start: 20120627
  4. DICLOFENAC [Concomitant]
     Indication: PAIN IN JAW
     Route: 048
     Dates: start: 20120611

REACTIONS (2)
  - OFF LABEL USE [None]
  - ANAPHYLACTIC REACTION [None]
